FAERS Safety Report 12452668 (Version 3)
Quarter: 2016Q3

REPORT INFORMATION
  Report Type: Spontaneous
  Country: US (occurrence: US)
  Receive Date: 20160609
  Receipt Date: 20160809
  Transmission Date: 20161109
  Serious: Yes (Other)
  Sender: FDA-Public Use
  Company Number: US-GLAXOSMITHKLINE-US2016081013

PATIENT
  Sex: Female

DRUGS (10)
  1. VITAMIN A [Concomitant]
     Active Substance: VITAMIN A
  2. ACIPHEX [Concomitant]
     Active Substance: RABEPRAZOLE SODIUM
  3. AMANTADINE [Concomitant]
     Active Substance: AMANTADINE
  4. VITAMIN C [Concomitant]
     Active Substance: ASCORBIC ACID
  5. PAXIL [Concomitant]
     Active Substance: PAROXETINE HYDROCHLORIDE
  6. FISH OIL [Concomitant]
     Active Substance: FISH OIL
  7. COCONUT OIL [Concomitant]
     Active Substance: COCONUT OIL
  8. SYMBICORT [Concomitant]
     Active Substance: BUDESONIDE\FORMOTEROL FUMARATE DIHYDRATE
  9. VERAMYST [Suspect]
     Active Substance: FLUTICASONE FUROATE
     Indication: ASTHMA
     Dosage: 2 DF, BID
     Route: 045
  10. MIRAPEX [Concomitant]
     Active Substance: PRAMIPEXOLE DIHYDROCHLORIDE

REACTIONS (2)
  - Lung neoplasm malignant [Unknown]
  - Malignant melanoma of sites other than skin [Unknown]

NARRATIVE: CASE EVENT DATE: 2016
